FAERS Safety Report 7129432-8 (Version None)
Quarter: 2010Q4

REPORT INFORMATION
  Report Type: 
  Country: None (occurrence: None)
  Receive Date: 20101104
  Receipt Date: 20101028
  Transmission Date: 20110411
  Serious: Yes (Hospitalization, Disabling, Other)
  Sender: FDA-Public Use
  Company Number: 2010SP005483

PATIENT
  Age: 26 Year
  Sex: Female
  Weight: 51.7101 kg

DRUGS (8)
  1. NUVARING [Suspect]
     Indication: PRODUCT USED FOR UNKNOWN INDICATION
     Dosage: VAG
     Route: 067
     Dates: start: 20080101, end: 20081101
  2. LOVENOX [Suspect]
     Indication: PULMONARY EMBOLISM
     Dosage: BID; TDER
     Dates: start: 20080101, end: 20090101
  3. COUMADIN [Suspect]
     Indication: PRODUCT USED FOR UNKNOWN INDICATION
  4. AVELOX [Suspect]
     Indication: PRODUCT USED FOR UNKNOWN INDICATION
  5. TYLENOL (CAPLET) [Concomitant]
  6. ADVAIR DISKUS 100/50 [Concomitant]
  7. PROAIR HFA [Concomitant]
  8. RELPAX [Concomitant]

REACTIONS (40)
  - ABDOMINAL DISCOMFORT [None]
  - ANGINA PECTORIS [None]
  - ASTHMA [None]
  - BRONCHITIS [None]
  - BRONCHOSPASM [None]
  - CERVICAL DYSPLASIA [None]
  - CONDITION AGGRAVATED [None]
  - CONTUSION [None]
  - DEPRESSION [None]
  - DRUG EXPOSURE DURING PREGNANCY [None]
  - DRUG INTOLERANCE [None]
  - DYSPNOEA [None]
  - EPISTAXIS [None]
  - FATIGUE [None]
  - FEELING JITTERY [None]
  - FIBRIN D DIMER INCREASED [None]
  - HAEMOPTYSIS [None]
  - HYPOKALAEMIA [None]
  - IMMOBILE [None]
  - IMPAIRED WORK ABILITY [None]
  - INJECTION SITE HAEMATOMA [None]
  - INJECTION SITE NODULE [None]
  - INJECTION SITE PAIN [None]
  - INJECTION SITE SWELLING [None]
  - MIGRAINE [None]
  - MUSCLE SPASMS [None]
  - MYALGIA [None]
  - PANIC ATTACK [None]
  - PLEURISY [None]
  - PLEURITIC PAIN [None]
  - PNEUMONIA [None]
  - PREGNANCY [None]
  - PROTEIN C DECREASED [None]
  - PROTEIN S DECREASED [None]
  - PULMONARY EMBOLISM [None]
  - PULMONARY INFARCTION [None]
  - SINUSITIS [None]
  - TEMPOROMANDIBULAR JOINT SYNDROME [None]
  - TREATMENT NONCOMPLIANCE [None]
  - WEIGHT DECREASED [None]
